FAERS Safety Report 6379960-8 (Version None)
Quarter: 2009Q3

REPORT INFORMATION
  Report Type: 
  Country: None (occurrence: None)
  Receive Date: 20090928
  Receipt Date: 20090919
  Transmission Date: 20100115
  Serious: Yes (Disabling)
  Sender: FDA-Public Use
  Company Number: US-ASTRAZENECA-2009SE14146

PATIENT
  Sex: Female

DRUGS (2)
  1. NAROPIN [Suspect]
     Indication: MUSCULOSKELETAL PAIN
     Dosage: CONTINOUS VIA STRYKER PUMP
     Route: 014
     Dates: start: 20060401
  2. STRYKER PAIN PUMP [Suspect]

REACTIONS (2)
  - CARTILAGE INJURY [None]
  - MUSCULOSKELETAL PAIN [None]
